FAERS Safety Report 16652377 (Version 1)
Quarter: 2019Q3

REPORT INFORMATION
  Report Type: Report from Study
  Country: US (occurrence: US)
  Receive Date: 20190731
  Receipt Date: 20190731
  Transmission Date: 20191004
  Serious: Yes (Other)
  Sender: FDA-Public Use
  Company Number: US-MALLINCKRODT-T201905256

PATIENT
  Sex: Male

DRUGS (1)
  1. REPOSITORY CORTICOTROPIN INJECTION [Suspect]
     Active Substance: CORTICOTROPIN
     Indication: PSORIATIC ARTHROPATHY
     Dosage: 80 UNITS/1 ML, 2 TIMES PER WEEK WEDNESDAY AND SUNDAYS
     Route: 030
     Dates: start: 20171002

REACTIONS (4)
  - Vasculitis [Unknown]
  - Immunodeficiency [Unknown]
  - Hypertension [Unknown]
  - Cardiomegaly [Unknown]
